FAERS Safety Report 5267561-4 (Version None)
Quarter: 2007Q1

REPORT INFORMATION
  Report Type: 
  Country: None (occurrence: None)
  Receive Date: 20070316
  Receipt Date: 20070316
  Transmission Date: 20070707
  Serious: Yes (Death, Other)
  Sender: FDA-Public Use
  Company Number: JP-BRISTOL-MYERS SQUIBB COMPANY-13707963

PATIENT
  Age: 63 Year
  Sex: Female

DRUGS (10)
  1. ENDOXAN [Suspect]
     Indication: ADULT T-CELL LYMPHOMA/LEUKAEMIA
     Dates: start: 20030709, end: 20030801
  2. VINCRISTINE SULFATE [Suspect]
     Indication: ADULT T-CELL LYMPHOMA/LEUKAEMIA
     Dates: start: 20030709, end: 20030801
  3. DOXORUBICIN HCL [Suspect]
     Indication: ADULT T-CELL LYMPHOMA/LEUKAEMIA
     Dates: start: 20030709, end: 20030801
  4. ETOPOSIDE [Suspect]
     Indication: ADULT T-CELL LYMPHOMA/LEUKAEMIA
     Route: 048
     Dates: start: 20040627
  5. CARBOPLATIN [Suspect]
     Indication: ADULT T-CELL LYMPHOMA/LEUKAEMIA
     Dates: start: 20030709, end: 20030801
  6. METHOTREXATE [Suspect]
     Indication: PROPHYLAXIS
     Route: 037
     Dates: start: 20030709, end: 20030801
  7. PREDNISOLONE [Suspect]
     Indication: ADULT T-CELL LYMPHOMA/LEUKAEMIA
     Route: 037
     Dates: start: 20030709, end: 20030801
  8. RANIMUSTINE [Suspect]
     Indication: ADULT T-CELL LYMPHOMA/LEUKAEMIA
     Dates: start: 20030709, end: 20030801
  9. VINDESINE SULFATE [Suspect]
     Indication: ADULT T-CELL LYMPHOMA/LEUKAEMIA
     Dates: start: 20030709, end: 20030801
  10. ARA-C [Suspect]
     Indication: PROPHYLAXIS
     Route: 037
     Dates: start: 20030709, end: 20030801

REACTIONS (2)
  - ACUTE MYELOID LEUKAEMIA [None]
  - MALIGNANT NEOPLASM PROGRESSION [None]
